FAERS Safety Report 12626914 (Version 1)
Quarter: 2016Q3

REPORT INFORMATION
  Report Type: Report from Study
  Country: US (occurrence: US)
  Receive Date: 20160805
  Receipt Date: 20160805
  Transmission Date: 20161109
  Serious: Yes (Other)
  Sender: FDA-Public Use
  Company Number: US-MYLANLABS-2016M1032087

PATIENT

DRUGS (1)
  1. VENLAFAXINE [Suspect]
     Active Substance: VENLAFAXINE HYDROCHLORIDE
     Indication: MENTAL DISORDER
     Dosage: 1800 MG (29.5 MG/KG)
     Route: 048

REACTIONS (4)
  - Off label use [Unknown]
  - Lethargy [Unknown]
  - Seizure [Unknown]
  - Somnolence [Unknown]
